FAERS Safety Report 26137333 (Version 1)
Quarter: 2025Q4

REPORT INFORMATION
  Report Type: Spontaneous
  Country: CN (occurrence: CN)
  Receive Date: 20251209
  Receipt Date: 20251209
  Transmission Date: 20260117
  Serious: Yes (Other)
  Sender: MERCK SHARP & DOHME LLC
  Company Number: CN-009507513-2356594

PATIENT
  Age: 55 Year
  Sex: Male

DRUGS (5)
  1. PEMBROLIZUMAB [Suspect]
     Active Substance: PEMBROLIZUMAB
     Indication: Hepatocellular carcinoma
     Dosage: TIME INTERVAL: CYCLICAL
  2. PEMBROLIZUMAB [Suspect]
     Active Substance: PEMBROLIZUMAB
     Indication: Hepatocellular carcinoma
     Dosage: TIME INTERVAL: CYCLICAL: TWO CYCLE
  3. PEMBROLIZUMAB [Suspect]
     Active Substance: PEMBROLIZUMAB
     Indication: Hepatocellular carcinoma
     Dosage: TIME INTERVAL: CYCLICAL: THIRD CYCLE
  4. PEMBROLIZUMAB [Suspect]
     Active Substance: PEMBROLIZUMAB
     Indication: Hepatocellular carcinoma
     Dosage: TIME INTERVAL: CYCLICAL: FOURTH CYCLE
  5. thymosin a1 [Concomitant]
     Indication: Hepatocellular carcinoma

REACTIONS (6)
  - Hallucination [Recovering/Resolving]
  - Diarrhoea [Recovering/Resolving]
  - Psychiatric symptom [Recovering/Resolving]
  - Intentional underdose [Unknown]
  - Immune-mediated hypothyroidism [Recovered/Resolved]
  - Immune-mediated thyroiditis [Recovered/Resolved]
